FAERS Safety Report 8370138-5 (Version None)
Quarter: 2012Q2

REPORT INFORMATION
  Report Type: 
  Country: None (occurrence: None)
  Receive Date: 20120518
  Receipt Date: 20120514
  Transmission Date: 20120825
  Serious: Yes (Other)
  Sender: FDA-Public Use
  Company Number: US-PFIZER INC-2012087506

PATIENT
  Sex: Female
  Weight: 71 kg

DRUGS (6)
  1. CORTISONE ACETATE [Suspect]
     Dosage: UNK
  2. FIBERCON [Suspect]
     Indication: CONSTIPATION
     Dosage: UNK, 1X/DAY
     Route: 048
     Dates: start: 20120405, end: 20120405
  3. FIBERCON [Suspect]
     Dosage: UNKNOWN DOSE ONCE A DAY
     Dates: start: 20120101
  4. NEURONTIN [Suspect]
     Dosage: 100 MG, UNK
     Dates: start: 20120101
  5. DILAUDID [Suspect]
     Dosage: UNK
  6. NEXIUM [Concomitant]
     Indication: GASTRIC DISORDER
     Dosage: UNK

REACTIONS (12)
  - DYSPNOEA [None]
  - ARTHRALGIA [None]
  - CONSTIPATION [None]
  - ERYTHEMA [None]
  - DYSPEPSIA [None]
  - ARTHROPATHY [None]
  - NAUSEA [None]
  - DYSGEUSIA [None]
  - HEADACHE [None]
  - OESOPHAGEAL PAIN [None]
  - DRUG HYPERSENSITIVITY [None]
  - MALAISE [None]
